FAERS Safety Report 8884588 (Version 1)
Quarter: 2012Q4

REPORT INFORMATION
  Report Type: 
  Country: US (occurrence: US)
  Receive Date: 20121102
  Receipt Date: 20121102
  Transmission Date: 20130627
  Serious: No
  Sender: FDA-Public Use
  Company Number: US-ASTRAZENECA-2012SE15765

PATIENT
  Age: 60 Year
  Sex: Male
  Weight: 121.6 kg

DRUGS (8)
  1. CRESTOR [Suspect]
     Indication: BLOOD CHOLESTEROL
     Route: 048
     Dates: start: 20110810
  2. SPIRONOLACTONE [Concomitant]
  3. LOSARTAN [Concomitant]
  4. CARVEDILOL [Concomitant]
  5. FUROSEMIDE [Concomitant]
  6. VITAMINS [Concomitant]
  7. NATURAL POTASSIUM SUPPLEMENT [Concomitant]
  8. BABY ASPIRIN [Concomitant]

REACTIONS (6)
  - Diarrhoea [Unknown]
  - Decreased appetite [Unknown]
  - Pollakiuria [Unknown]
  - Fatigue [Unknown]
  - Drug administration error [Unknown]
  - Drug dose omission [Unknown]
